FAERS Safety Report 5871969-3 (Version None)
Quarter: 2008Q3

REPORT INFORMATION
  Report Type: 
  Country: None (occurrence: None)
  Receive Date: 20080904
  Receipt Date: 20080904
  Transmission Date: 20090109
  Serious: Yes (Disabling, Other)
  Sender: FDA-Public Use
  Company Number: None

PATIENT
  Age: 23 Year
  Sex: Female
  Weight: 85.7298 kg

DRUGS (1)
  1. NUVARING [Suspect]

REACTIONS (3)
  - ANOVULATORY CYCLE [None]
  - INFERTILITY FEMALE [None]
  - POLYCYSTIC OVARIES [None]
